FAERS Safety Report 5456687-8 (Version None)
Quarter: 2007Q3

REPORT INFORMATION
  Report Type: 
  Country: None (occurrence: None)
  Receive Date: 20070918
  Receipt Date: 20070906
  Transmission Date: 20080115
  Serious: Yes (Hospitalization)
  Sender: FDA-Public Use
  Company Number: BE-PFIZER INC-2007075428

PATIENT
  Age: 45 Year
  Sex: Female
  Weight: 95 kg

DRUGS (6)
  1. LYRICA [Suspect]
     Indication: EPILEPSY
     Route: 048
  2. ZYPREXA [Concomitant]
     Route: 048
  3. GARDENAL ^AVENTIS^ [Concomitant]
     Route: 048
  4. DIPHANTOINE [Concomitant]
     Route: 048
  5. LYSANXIA [Concomitant]
     Route: 048
  6. PROTHIADEN [Concomitant]
     Route: 048

REACTIONS (2)
  - FISTULA [None]
  - PERIANAL ABSCESS [None]
